FAERS Safety Report 4403979-7 (Version None)
Quarter: 2004Q3

REPORT INFORMATION
  Report Type: 
  Country: None (occurrence: None)
  Receive Date: 20040719
  Receipt Date: 20040707
  Transmission Date: 20050211
  Serious: Yes (Life-Threatening)
  Sender: FDA-Public Use
  Company Number: 04H-122-0266658-00

PATIENT
  Age: 47 Year
  Sex: Female

DRUGS (3)
  1. PENTOTHAL [Suspect]
     Indication: ANAESTHESIA
     Dosage: 375 MG, ONLY ONCE, INTRAVENOUS
     Route: 042
     Dates: start: 20040611, end: 20040611
  2. VECURONIUM BROMIDE [Concomitant]
  3. SUCCINYLCHOLINE CHLORIDE [Concomitant]

REACTIONS (2)
  - BRONCHOSPASM [None]
  - OXYGEN SATURATION DECREASED [None]
